FAERS Safety Report 21667361 (Version 1)
Quarter: 2022Q4

REPORT INFORMATION
  Report Type: Spontaneous
  Country: US (occurrence: US)
  Receive Date: 20221201
  Receipt Date: 20221201
  Transmission Date: 20230113
  Serious: Yes (Other)
  Sender: FDA-Public Use
  Company Number: US-009507513-2211USA009121

PATIENT

DRUGS (1)
  1. KEYTRUDA [Suspect]
     Active Substance: PEMBROLIZUMAB
     Indication: Malignant melanoma stage III
     Dosage: UNK

REACTIONS (6)
  - Coeliac disease [Unknown]
  - Feeding disorder [Unknown]
  - Limb mass [Unknown]
  - Surgery [Unknown]
  - Gastric disorder [Unknown]
  - Colitis [Unknown]
